FAERS Safety Report 9370055 (Version 1)
Quarter: 2013Q2

REPORT INFORMATION
  Report Type: Other
  Country: GB (occurrence: GB)
  Receive Date: 20130626
  Receipt Date: 20130626
  Transmission Date: 20140414
  Serious: Yes (Hospitalization)
  Sender: FDA-Public Use
  Company Number: GB-TARO PHARMACEUTICALS U.S.A., INC-2013SUN00855

PATIENT
  Sex: 0

DRUGS (7)
  1. WARFARIN [Suspect]
     Indication: AORTIC VALVE REPLACEMENT
     Dosage: UNK
     Route: 048
     Dates: start: 19830607, end: 20130605
  2. ADIZEM-SR [Concomitant]
  3. CO-CODAMOL [Concomitant]
  4. FUROSEMIDE [Concomitant]
  5. LOSARTAN [Concomitant]
  6. PRAVASTATIN [Concomitant]
  7. TOLTERODINE [Concomitant]

REACTIONS (3)
  - Haemoglobin decreased [Unknown]
  - International normalised ratio increased [Unknown]
  - Rectal haemorrhage [Recovering/Resolving]
